FAERS Safety Report 18920084 (Version 1)
Quarter: 2021Q1

REPORT INFORMATION
  Report Type: Report from Study
  Country: IT (occurrence: IT)
  Receive Date: 20210222
  Receipt Date: 20210222
  Transmission Date: 20210420
  Serious: Yes (Hospitalization)
  Sender: FDA-Public Use
  Company Number: IT-TEVA-2021-IT-1881209

PATIENT
  Age: 21 Year
  Sex: Female

DRUGS (4)
  1. QUETIAPINE FUMARATE. [Suspect]
     Active Substance: QUETIAPINE FUMARATE
     Dates: start: 20201224, end: 20201224
  2. CARBOLITHIUM 300 MG CAPSULE RIGIDE [Suspect]
     Active Substance: LITHIUM CARBONATE
     Dosage: CARBOLITHIUM 150 MG CAPSULE RIGIDE
     Dates: start: 20201224, end: 20201224
  3. DEPAKIN [Concomitant]
     Active Substance: VALPROATE SODIUM
  4. CARBOLITHIUM 300 MG CAPSULE RIGIDE [Suspect]
     Active Substance: LITHIUM CARBONATE
     Dates: start: 20201224, end: 20201224

REACTIONS (1)
  - Suicide attempt [Unknown]

NARRATIVE: CASE EVENT DATE: 20201224
